FAERS Safety Report 8981319 (Version 1)
Quarter: 2012Q4

REPORT INFORMATION
  Report Type: 
  Country: JP (occurrence: JP)
  Receive Date: 20121221
  Receipt Date: 20121221
  Transmission Date: 20130627
  Serious: Yes (Other)
  Sender: FDA-Public Use
  Company Number: JP-009507513-1212JPN008020

PATIENT
  Age: 34 Year
  Sex: Male

DRUGS (1)
  1. RINDERON [Suspect]
     Dosage: UNK
     Dates: start: 200708

REACTIONS (1)
  - Secondary adrenocortical insufficiency [Unknown]
